FAERS Safety Report 4483497-0 (Version None)
Quarter: 2004Q4

REPORT INFORMATION
  Report Type: 
  Country: None (occurrence: None)
  Receive Date: 20041019
  Receipt Date: 20041019
  Transmission Date: 20050328
  Serious: No
  Sender: FDA-Public Use
  Company Number: None

PATIENT

DRUGS (1)
  1. VIOXX [Suspect]
     Indication: OSTEOARTHRITIS
     Dosage: 1 DAILY

REACTIONS (3)
  - DIZZINESS [None]
  - DYSPEPSIA [None]
  - PALPITATIONS [None]
